FAERS Safety Report 8716837 (Version 4)
Quarter: 2014Q1

REPORT INFORMATION
  Report Type: Spontaneous
  Country: US (occurrence: US)
  Receive Date: 20120810
  Receipt Date: 20140116
  Transmission Date: 20141002
  Serious: Yes (Other)
  Sender: FDA-Public Use
  Company Number: US-PFIZER INC-2012193504

PATIENT
  Age: 62 Year
  Sex: Female
  Weight: 86.17 kg

DRUGS (11)
  1. EFFEXOR XR [Suspect]
     Indication: DEPRESSION
     Dosage: 300 MG (BY TAKING 2 CAPSULES OF 150 MG), 1X/DAY
     Route: 048
  2. CLONAZEPAM [Concomitant]
     Dosage: ONE AND HALF TABLET OF 1 MG, 4X/DAY
  3. DEPAKOTE [Concomitant]
     Dosage: 250 MG, 4X/DAY
  4. LEVOTHYROXINE [Concomitant]
     Dosage: 100 MG, 1X/DAY
  5. FOLIC ACID [Concomitant]
     Dosage: 1 MG, 1X/DAY
  6. VITAMIN B12 [Concomitant]
     Dosage: 500 UG, 1X/DAY
  7. VITAMIN D3 [Concomitant]
     Dosage: 1000 UNITS, 1X/DAY
  8. FOSAMAX [Concomitant]
     Dosage: UNK, WEEKLY
  9. PROPRANOLOL [Concomitant]
     Dosage: 20 MG, 3X/DAY
  10. LIPITOR [Concomitant]
     Dosage: 10 MG, 1X/DAY
  11. MEDROL [Concomitant]
     Dosage: 4 MG, UNK

REACTIONS (4)
  - Panic attack [Unknown]
  - Joint injury [Unknown]
  - Mental status changes [Unknown]
  - Accident [Unknown]
